FAERS Safety Report 11273521 (Version 1)
Quarter: 2015Q3

REPORT INFORMATION
  Report Type: Spontaneous
  Country: US (occurrence: US)
  Receive Date: 20150715
  Receipt Date: 20150715
  Transmission Date: 20151125
  Serious: No
  Sender: FDA-Public Use
  Company Number: US-ENDO PHARMACEUTICALS INC.-201407008

PATIENT
  Age: 85 Year
  Sex: Male
  Weight: 77.18 kg

DRUGS (6)
  1. AMLODIPINE [Concomitant]
     Active Substance: AMLODIPINE BESYLATE
  2. TAMSULOSIN [Concomitant]
     Active Substance: TAMSULOSIN
  3. EDEX [Suspect]
     Active Substance: ALPROSTADIL
     Route: 017
     Dates: start: 201405
  4. LISINOPRIL. [Concomitant]
     Active Substance: LISINOPRIL
  5. EDEX [Suspect]
     Active Substance: ALPROSTADIL
     Route: 017
     Dates: start: 201405
  6. ATORVASTATIN [Concomitant]
     Active Substance: ATORVASTATIN

REACTIONS (1)
  - Drug ineffective [Not Recovered/Not Resolved]

NARRATIVE: CASE EVENT DATE: 201405
